FAERS Safety Report 8074913-6 (Version None)
Quarter: 2012Q1

REPORT INFORMATION
  Report Type: 
  Country: None (occurrence: None)
  Receive Date: 20120126
  Receipt Date: 20120118
  Transmission Date: 20120608
  Serious: Yes (Other)
  Sender: FDA-Public Use
  Company Number: JP-BRISTOL-MYERS SQUIBB COMPANY-15972748

PATIENT
  Age: 14 Year
  Sex: Female

DRUGS (7)
  1. VINCRISTINE [Suspect]
     Indication: MEDULLOBLASTOMA
  2. METHOTREXATE [Suspect]
     Indication: MEDULLOBLASTOMA
  3. DEXAMETHASONE [Suspect]
     Indication: MEDULLOBLASTOMA
  4. CISPLATIN [Suspect]
     Indication: MEDULLOBLASTOMA
  5. RITUXIMAB [Suspect]
     Dosage: 5 TIMES.
     Dates: start: 20091101
  6. CYCLOPHOSPHAMIDE [Suspect]
     Indication: MEDULLOBLASTOMA
  7. VEPESID [Suspect]
     Indication: MEDULLOBLASTOMA

REACTIONS (4)
  - LYMPHOPENIA [None]
  - POST TRANSPLANT LYMPHOPROLIFERATIVE DISORDER [None]
  - ENCEPHALITIS POST VARICELLA [None]
  - CYTOMEGALOVIRUS INFECTION [None]
